FAERS Safety Report 10154244 (Version 2)
Quarter: 2014Q2

REPORT INFORMATION
  Report Type: Spontaneous
  Country: US (occurrence: US)
  Receive Date: 20140506
  Receipt Date: 20140617
  Transmission Date: 20141212
  Serious: Yes (Hospitalization)
  Sender: FDA-Public Use
  Company Number: US-PFIZER INC-2014119812

PATIENT
  Age: 76 Year
  Sex: Female

DRUGS (9)
  1. XALKORI [Suspect]
     Indication: NON-SMALL CELL LUNG CANCER
     Dosage: 250 MG, 2X/DAY
     Route: 048
     Dates: start: 20140405, end: 20140415
  2. KLOR-CON M10 [Concomitant]
     Dosage: UNK
  3. IMODIUM A-D [Concomitant]
     Dosage: 2 MG, AS NEEDED
     Route: 048
  4. MEGACE [Concomitant]
     Dosage: 20 ML, DAILY
     Route: 048
  5. METOPROLOL TARTRATE [Concomitant]
     Dosage: 50 MG, 2X/DAY
     Route: 048
  6. NYQUIL [Concomitant]
     Dosage: 5 ML, (AS DIRECTED)
     Route: 048
  7. PEPTO-BISMOL [Concomitant]
     Dosage: 30 ML, AS NEEDED
     Route: 048
  8. REMERON [Concomitant]
     Dosage: 15 MG, DAILY
     Route: 048
  9. TIMOLOL [Concomitant]
     Dosage: UNK, (0.25% DROPS, TAKE 1 DROP OPHTHALMIC AS DIRECTED)
     Route: 047

REACTIONS (3)
  - Vomiting [Recovered/Resolved]
  - Nausea [Recovered/Resolved]
  - Hypovolaemia [Recovered/Resolved]
